FAERS Safety Report 8857706 (Version 1)
Quarter: 2012Q4

REPORT INFORMATION
  Report Type: 
  Country: ES (occurrence: ES)
  Receive Date: 20121024
  Receipt Date: 20121024
  Transmission Date: 20130627
  Serious: Yes (Other)
  Sender: FDA-Public Use
  Company Number: ES-MPIJNJ-2012-07220

PATIENT

DRUGS (3)
  1. VELCADE [Suspect]
     Indication: WALDENSTROM^S MACROGLOBULINAEMIA
     Dosage: 1.6 mg/m2, Cyclic
     Route: 058
     Dates: start: 2012, end: 2012
  2. VELCADE [Suspect]
     Dosage: 1 mg/m2, UNK
     Route: 058
  3. DEXAMETHASONE [Concomitant]
     Indication: WALDENSTROM^S MACROGLOBULINAEMIA

REACTIONS (5)
  - Gastrointestinal disorder [Unknown]
  - Injection site erythema [Unknown]
  - Off label use [Unknown]
  - Anaemia [Unknown]
  - Neuropathy peripheral [Unknown]
